FAERS Safety Report 12488155 (Version 1)
Quarter: 2016Q2

REPORT INFORMATION
  Report Type: Spontaneous
  Country: US (occurrence: US)
  Receive Date: 20160622
  Receipt Date: 20160622
  Transmission Date: 20160815
  Serious: No
  Sender: FDA-Public Use
  Company Number: US-PFIZER INC-2016310081

PATIENT
  Age: 61 Year
  Sex: Female
  Weight: 127 kg

DRUGS (1)
  1. DOXYCYCLINE HYCLATE. [Suspect]
     Active Substance: DOXYCYCLINE HYCLATE
     Indication: SINUSITIS
     Dosage: DOSE WAS 500MG (NOT SURE), ALSO THOUGHT SHE TOOK THIS CAPSULE TWICE DAILY
     Route: 048
     Dates: start: 20160510, end: 20160520

REACTIONS (1)
  - Drug ineffective [Unknown]
